FAERS Safety Report 7283702-1 (Version None)
Quarter: 2011Q1

REPORT INFORMATION
  Report Type: 
  Country: None (occurrence: None)
  Receive Date: 20110204
  Receipt Date: 20110204
  Transmission Date: 20110831
  Serious: Yes (Other)
  Sender: FDA-Public Use
  Company Number: None

PATIENT
  Sex: Female
  Weight: 81.6475 kg

DRUGS (1)
  1. ATARAX [Suspect]
     Indication: ANXIETY
     Dosage: 10MG  3X A DAY
     Dates: start: 20101101, end: 20110101

REACTIONS (1)
  - HEADACHE [None]
